FAERS Safety Report 23792977 (Version 3)
Quarter: 2024Q2

REPORT INFORMATION
  Report Type: Spontaneous
  Country: GB (occurrence: GB)
  Receive Date: 20240429
  Receipt Date: 20240523
  Transmission Date: 20240715
  Serious: Yes (Hospitalization, Other)
  Sender: FDA-Public Use
  Company Number: GB-SANDOZ-NVSC2023GB148009

PATIENT
  Age: 88 Year
  Sex: Female
  Weight: 88 kg

DRUGS (211)
  1. METHOTREXATE [Suspect]
     Active Substance: METHOTREXATE
     Indication: Colitis
     Dosage: UNK
     Route: 065
  2. METHOTREXATE SODIUM [Suspect]
     Active Substance: METHOTREXATE SODIUM
     Indication: Colitis
     Dosage: UNK
     Route: 065
  3. METHOTREXATE SODIUM [Suspect]
     Active Substance: METHOTREXATE SODIUM
     Dosage: UNK
     Route: 065
  4. METHOTREXATE SODIUM [Suspect]
     Active Substance: METHOTREXATE SODIUM
     Dosage: UNK
     Route: 065
  5. METHOTREXATE SODIUM [Suspect]
     Active Substance: METHOTREXATE SODIUM
     Dosage: UNK
     Route: 065
  6. METHOTREXATE SODIUM [Suspect]
     Active Substance: METHOTREXATE SODIUM
     Dosage: UNK
     Route: 065
  7. METHOTREXATE SODIUM [Suspect]
     Active Substance: METHOTREXATE SODIUM
     Dosage: UNK
     Route: 065
  8. METHOTREXATE SODIUM [Suspect]
     Active Substance: METHOTREXATE SODIUM
     Dosage: UNK
     Route: 065
  9. METHOTREXATE SODIUM [Suspect]
     Active Substance: METHOTREXATE SODIUM
     Dosage: UNK
     Route: 065
  10. METHOTREXATE SODIUM [Suspect]
     Active Substance: METHOTREXATE SODIUM
     Dosage: UNK
     Route: 065
  11. METHOTREXATE SODIUM [Suspect]
     Active Substance: METHOTREXATE SODIUM
     Dosage: UNK
     Route: 065
  12. METHOTREXATE SODIUM [Suspect]
     Active Substance: METHOTREXATE SODIUM
     Dosage: UNK
     Route: 065
  13. METHOTREXATE SODIUM [Suspect]
     Active Substance: METHOTREXATE SODIUM
     Dosage: UNK
     Route: 065
  14. METHOTREXATE SODIUM [Suspect]
     Active Substance: METHOTREXATE SODIUM
     Dosage: UNK
     Route: 065
  15. METHOTREXATE SODIUM [Suspect]
     Active Substance: METHOTREXATE SODIUM
     Dosage: UNK
     Route: 065
  16. METHOTREXATE SODIUM [Suspect]
     Active Substance: METHOTREXATE SODIUM
     Dosage: UNK
     Route: 065
  17. METHOTREXATE SODIUM [Suspect]
     Active Substance: METHOTREXATE SODIUM
     Dosage: UNK
     Route: 065
  18. METHOTREXATE SODIUM [Suspect]
     Active Substance: METHOTREXATE SODIUM
     Dosage: UNK
     Route: 065
  19. METHOTREXATE SODIUM [Suspect]
     Active Substance: METHOTREXATE SODIUM
     Dosage: UNK
     Route: 065
  20. METHOTREXATE SODIUM [Suspect]
     Active Substance: METHOTREXATE SODIUM
     Dosage: UNK
     Route: 065
  21. METHOTREXATE SODIUM [Suspect]
     Active Substance: METHOTREXATE SODIUM
     Dosage: UNK
     Route: 065
  22. METHOTREXATE SODIUM [Suspect]
     Active Substance: METHOTREXATE SODIUM
     Dosage: UNK
     Route: 065
  23. METHOTREXATE SODIUM [Suspect]
     Active Substance: METHOTREXATE SODIUM
     Dosage: UNK
     Route: 065
  24. METHOTREXATE SODIUM [Suspect]
     Active Substance: METHOTREXATE SODIUM
     Dosage: UNK
     Route: 065
  25. METHOTREXATE SODIUM [Suspect]
     Active Substance: METHOTREXATE SODIUM
     Dosage: UNK
     Route: 065
  26. METHOTREXATE SODIUM [Suspect]
     Active Substance: METHOTREXATE SODIUM
     Dosage: UNK
     Route: 065
  27. METHOTREXATE SODIUM [Suspect]
     Active Substance: METHOTREXATE SODIUM
     Dosage: UNK
     Route: 065
  28. METHOTREXATE SODIUM [Suspect]
     Active Substance: METHOTREXATE SODIUM
     Dosage: UNK
     Route: 065
  29. METHOTREXATE SODIUM [Suspect]
     Active Substance: METHOTREXATE SODIUM
     Dosage: UNK
     Route: 065
  30. METHOTREXATE SODIUM [Suspect]
     Active Substance: METHOTREXATE SODIUM
     Dosage: UNK
     Route: 065
  31. METHOTREXATE SODIUM [Suspect]
     Active Substance: METHOTREXATE SODIUM
     Dosage: UNK
     Route: 065
  32. METHOTREXATE SODIUM [Suspect]
     Active Substance: METHOTREXATE SODIUM
     Dosage: UNK
     Route: 065
  33. METHOTREXATE SODIUM [Suspect]
     Active Substance: METHOTREXATE SODIUM
     Dosage: UNK
     Route: 065
  34. METHOTREXATE SODIUM [Suspect]
     Active Substance: METHOTREXATE SODIUM
     Dosage: UNK
     Route: 065
  35. METHOTREXATE SODIUM [Suspect]
     Active Substance: METHOTREXATE SODIUM
     Dosage: UNK
     Route: 065
  36. METHOTREXATE SODIUM [Suspect]
     Active Substance: METHOTREXATE SODIUM
     Dosage: UNK
     Route: 065
  37. METHOTREXATE SODIUM [Suspect]
     Active Substance: METHOTREXATE SODIUM
     Dosage: UNK
     Route: 065
  38. METHOTREXATE SODIUM [Suspect]
     Active Substance: METHOTREXATE SODIUM
     Dosage: UNK
     Route: 065
  39. INFLIXIMAB [Suspect]
     Active Substance: INFLIXIMAB
     Indication: Colitis
     Dosage: 10 MILLIGRAM/KILOGRAM, Q8WK
     Route: 065
  40. INFLIXIMAB [Suspect]
     Active Substance: INFLIXIMAB
     Dosage: UNK
     Route: 065
  41. INFLIXIMAB [Suspect]
     Active Substance: INFLIXIMAB
     Dosage: 10 MILLIGRAM/KILOGRAM, Q8WK
     Route: 065
  42. INFLIXIMAB [Suspect]
     Active Substance: INFLIXIMAB
     Dosage: 10 MILLIGRAM/KILOGRAM, Q8WK
     Route: 065
  43. INFLIXIMAB [Suspect]
     Active Substance: INFLIXIMAB
     Dosage: UNK
     Route: 065
  44. INFLIXIMAB [Suspect]
     Active Substance: INFLIXIMAB
     Dosage: UNK
     Route: 065
  45. INFLIXIMAB [Suspect]
     Active Substance: INFLIXIMAB
     Dosage: UNK
     Route: 065
  46. INFLIXIMAB [Suspect]
     Active Substance: INFLIXIMAB
     Dosage: UNK
     Route: 065
  47. INFLIXIMAB [Suspect]
     Active Substance: INFLIXIMAB
     Dosage: UNK
     Route: 065
  48. INFLIXIMAB [Suspect]
     Active Substance: INFLIXIMAB
     Dosage: UNK
     Route: 065
  49. INFLIXIMAB [Suspect]
     Active Substance: INFLIXIMAB
     Dosage: UNK
     Route: 065
  50. INFLIXIMAB [Suspect]
     Active Substance: INFLIXIMAB
     Dosage: UNK
     Route: 065
  51. INFLIXIMAB [Suspect]
     Active Substance: INFLIXIMAB
     Dosage: UNK
     Route: 065
  52. INFLIXIMAB [Suspect]
     Active Substance: INFLIXIMAB
     Dosage: UNK
     Route: 065
  53. INFLIXIMAB [Suspect]
     Active Substance: INFLIXIMAB
     Dosage: UNK
     Route: 065
  54. INFLIXIMAB [Suspect]
     Active Substance: INFLIXIMAB
     Dosage: UNK
     Route: 065
  55. INFLIXIMAB [Suspect]
     Active Substance: INFLIXIMAB
     Dosage: UNK
     Route: 065
  56. INFLIXIMAB [Suspect]
     Active Substance: INFLIXIMAB
     Dosage: UNK
     Route: 065
  57. INFLIXIMAB [Suspect]
     Active Substance: INFLIXIMAB
     Dosage: UNK
     Route: 065
  58. INFLIXIMAB [Suspect]
     Active Substance: INFLIXIMAB
     Dosage: UNK
     Route: 065
  59. INFLIXIMAB [Suspect]
     Active Substance: INFLIXIMAB
     Dosage: UNK
     Route: 065
  60. INFLIXIMAB [Suspect]
     Active Substance: INFLIXIMAB
     Dosage: UNK
     Route: 065
  61. INFLIXIMAB [Suspect]
     Active Substance: INFLIXIMAB
     Dosage: UNK
     Route: 065
  62. INFLIXIMAB [Suspect]
     Active Substance: INFLIXIMAB
     Dosage: 10 MILLIGRAM/KILOGRAM, Q8WK
     Route: 065
  63. INFLIXIMAB [Suspect]
     Active Substance: INFLIXIMAB
     Dosage: 10 MILLIGRAM/KILOGRAM, Q8WK
     Route: 065
  64. INFLIXIMAB [Suspect]
     Active Substance: INFLIXIMAB
     Dosage: 10 MILLIGRAM/KILOGRAM, Q8WK
     Route: 065
  65. INFLIXIMAB [Suspect]
     Active Substance: INFLIXIMAB
     Dosage: 10 MILLIGRAM/KILOGRAM, Q8WK
     Route: 065
  66. INFLIXIMAB [Suspect]
     Active Substance: INFLIXIMAB
     Dosage: 10 MILLIGRAM/KILOGRAM, Q8WK
     Route: 065
  67. INFLIXIMAB [Suspect]
     Active Substance: INFLIXIMAB
     Dosage: UNK
     Route: 042
  68. INFLIXIMAB [Suspect]
     Active Substance: INFLIXIMAB
     Dosage: UNK
  69. ADALIMUMAB [Suspect]
     Active Substance: ADALIMUMAB\ISOPROPYL ALCOHOL
     Indication: Product used for unknown indication
     Dosage: UNK
     Route: 065
  70. ADALIMUMAB [Suspect]
     Active Substance: ADALIMUMAB\ISOPROPYL ALCOHOL
     Dosage: UNK
     Route: 065
  71. ADALIMUMAB [Suspect]
     Active Substance: ADALIMUMAB\ISOPROPYL ALCOHOL
     Dosage: UNK
     Route: 065
  72. ADALIMUMAB [Suspect]
     Active Substance: ADALIMUMAB\ISOPROPYL ALCOHOL
     Dosage: UNK
     Route: 065
  73. ADALIMUMAB [Suspect]
     Active Substance: ADALIMUMAB\ISOPROPYL ALCOHOL
     Dosage: UNK
     Route: 065
  74. ADALIMUMAB [Suspect]
     Active Substance: ADALIMUMAB\ISOPROPYL ALCOHOL
     Dosage: UNK
     Route: 065
  75. ADALIMUMAB [Suspect]
     Active Substance: ADALIMUMAB\ISOPROPYL ALCOHOL
     Dosage: UNK
     Route: 065
  76. ADALIMUMAB [Suspect]
     Active Substance: ADALIMUMAB\ISOPROPYL ALCOHOL
     Dosage: UNK
     Route: 065
  77. ADALIMUMAB [Suspect]
     Active Substance: ADALIMUMAB\ISOPROPYL ALCOHOL
     Dosage: UNK
     Route: 065
  78. ADALIMUMAB [Suspect]
     Active Substance: ADALIMUMAB\ISOPROPYL ALCOHOL
     Dosage: UNK
     Route: 065
  79. ADALIMUMAB [Suspect]
     Active Substance: ADALIMUMAB\ISOPROPYL ALCOHOL
     Dosage: UNK
     Route: 065
  80. ADALIMUMAB [Suspect]
     Active Substance: ADALIMUMAB\ISOPROPYL ALCOHOL
     Dosage: UNK
     Route: 065
  81. ADALIMUMAB [Suspect]
     Active Substance: ADALIMUMAB\ISOPROPYL ALCOHOL
     Dosage: UNK
     Route: 065
  82. ADALIMUMAB [Suspect]
     Active Substance: ADALIMUMAB\ISOPROPYL ALCOHOL
     Dosage: UNK
     Route: 065
  83. ADALIMUMAB [Suspect]
     Active Substance: ADALIMUMAB\ISOPROPYL ALCOHOL
     Dosage: UNK
     Route: 065
  84. ADALIMUMAB [Suspect]
     Active Substance: ADALIMUMAB\ISOPROPYL ALCOHOL
     Dosage: UNK
     Route: 065
  85. ADALIMUMAB [Suspect]
     Active Substance: ADALIMUMAB\ISOPROPYL ALCOHOL
     Dosage: UNK
     Route: 065
  86. ADALIMUMAB [Suspect]
     Active Substance: ADALIMUMAB\ISOPROPYL ALCOHOL
     Dosage: UNK
     Route: 065
  87. ADALIMUMAB [Suspect]
     Active Substance: ADALIMUMAB\ISOPROPYL ALCOHOL
     Dosage: UNK
     Route: 065
  88. ADALIMUMAB [Suspect]
     Active Substance: ADALIMUMAB\ISOPROPYL ALCOHOL
     Dosage: UNK
     Route: 065
  89. ADALIMUMAB [Suspect]
     Active Substance: ADALIMUMAB\ISOPROPYL ALCOHOL
     Dosage: UNK
     Route: 065
  90. ADALIMUMAB [Suspect]
     Active Substance: ADALIMUMAB\ISOPROPYL ALCOHOL
     Dosage: UNK
     Route: 065
  91. ADALIMUMAB [Suspect]
     Active Substance: ADALIMUMAB\ISOPROPYL ALCOHOL
     Dosage: UNK
     Route: 065
  92. ADALIMUMAB [Suspect]
     Active Substance: ADALIMUMAB\ISOPROPYL ALCOHOL
     Dosage: UNK
     Route: 065
  93. ADALIMUMAB [Suspect]
     Active Substance: ADALIMUMAB\ISOPROPYL ALCOHOL
     Dosage: UNK
     Route: 065
  94. ADALIMUMAB [Suspect]
     Active Substance: ADALIMUMAB\ISOPROPYL ALCOHOL
     Dosage: UNK
     Route: 065
  95. ADALIMUMAB [Suspect]
     Active Substance: ADALIMUMAB\ISOPROPYL ALCOHOL
     Dosage: UNK
     Route: 065
  96. ADALIMUMAB [Suspect]
     Active Substance: ADALIMUMAB\ISOPROPYL ALCOHOL
     Dosage: UNK
     Route: 065
  97. ADALIMUMAB [Suspect]
     Active Substance: ADALIMUMAB\ISOPROPYL ALCOHOL
     Dosage: UNK
     Route: 065
  98. ADALIMUMAB [Suspect]
     Active Substance: ADALIMUMAB\ISOPROPYL ALCOHOL
     Dosage: UNK
     Route: 065
  99. ADALIMUMAB [Suspect]
     Active Substance: ADALIMUMAB\ISOPROPYL ALCOHOL
     Dosage: UNK
     Route: 065
  100. ADALIMUMAB [Suspect]
     Active Substance: ADALIMUMAB\ISOPROPYL ALCOHOL
     Dosage: UNK
     Route: 065
  101. ADALIMUMAB [Suspect]
     Active Substance: ADALIMUMAB\ISOPROPYL ALCOHOL
     Dosage: UNK
     Route: 065
  102. ADALIMUMAB [Suspect]
     Active Substance: ADALIMUMAB\ISOPROPYL ALCOHOL
     Dosage: UNK
     Route: 065
  103. ADALIMUMAB [Suspect]
     Active Substance: ADALIMUMAB\ISOPROPYL ALCOHOL
     Dosage: UNK
     Route: 065
  104. ADALIMUMAB [Suspect]
     Active Substance: ADALIMUMAB\ISOPROPYL ALCOHOL
     Dosage: UNK
     Route: 065
  105. ADALIMUMAB [Suspect]
     Active Substance: ADALIMUMAB\ISOPROPYL ALCOHOL
     Dosage: UNK
     Route: 065
  106. ADALIMUMAB [Suspect]
     Active Substance: ADALIMUMAB\ISOPROPYL ALCOHOL
     Dosage: UNK
     Route: 065
  107. ADALIMUMAB [Suspect]
     Active Substance: ADALIMUMAB\ISOPROPYL ALCOHOL
     Dosage: UNK
     Route: 065
  108. ADALIMUMAB [Suspect]
     Active Substance: ADALIMUMAB\ISOPROPYL ALCOHOL
     Dosage: UNK
     Route: 065
  109. ADALIMUMAB [Suspect]
     Active Substance: ADALIMUMAB\ISOPROPYL ALCOHOL
     Dosage: UNK
     Route: 065
  110. ADALIMUMAB [Suspect]
     Active Substance: ADALIMUMAB\ISOPROPYL ALCOHOL
     Dosage: UNK
     Route: 065
  111. ADALIMUMAB [Suspect]
     Active Substance: ADALIMUMAB\ISOPROPYL ALCOHOL
     Dosage: UNK
     Route: 065
  112. ADALIMUMAB [Suspect]
     Active Substance: ADALIMUMAB\ISOPROPYL ALCOHOL
     Dosage: UNK
     Route: 065
  113. ADALIMUMAB [Suspect]
     Active Substance: ADALIMUMAB\ISOPROPYL ALCOHOL
     Dosage: UNK
     Route: 065
  114. ADALIMUMAB [Suspect]
     Active Substance: ADALIMUMAB\ISOPROPYL ALCOHOL
     Dosage: UNK
     Route: 065
  115. INFLIXIMAB [Suspect]
     Active Substance: INFLIXIMAB
     Indication: Colitis
     Dosage: 10 MG/KG (EVERY 8 WEEKS), CYCLICAL
     Route: 065
     Dates: start: 20200407, end: 20230501
  116. INFLIXIMAB [Suspect]
     Active Substance: INFLIXIMAB
     Dosage: 7 MILLIGRAM/KILOGRAM
     Route: 065
  117. INFLIXIMAB [Suspect]
     Active Substance: INFLIXIMAB
     Dosage: 199.82 MILLIGRAM/KILOGRAM
     Route: 065
  118. INFLIXIMAB [Suspect]
     Active Substance: INFLIXIMAB
     Dosage: 7 MILLIGRAM/KILOGRAM, QW, Q8W (10 MILLIGRAM/KILOGRAM, Q8WK)/ CUMULATIVE DOSE 1119 MG/KG
     Route: 065
     Dates: start: 20200407, end: 20230501
  119. INFLIXIMAB [Suspect]
     Active Substance: INFLIXIMAB
     Dosage: UNK(MILLIGRAM/KILOGRAM)
     Route: 065
  120. INFLIXIMAB [Suspect]
     Active Substance: INFLIXIMAB
     Dosage: 10 MG/KG (EVERY 8 WEEKS),CYCLICAL
     Route: 065
     Dates: start: 20200407, end: 20230501
  121. INFLIXIMAB [Suspect]
     Active Substance: INFLIXIMAB
     Dosage: 10 MG/KG (EVERY 8 WEEKS),CYCLICAL
     Route: 065
     Dates: start: 20200407, end: 20230501
  122. INFLIXIMAB [Suspect]
     Active Substance: INFLIXIMAB
     Dosage: 10 MG/KG (EVERY 8 WEEKS),CYCLICAL
     Route: 065
     Dates: start: 20200407, end: 20230501
  123. INFLIXIMAB [Suspect]
     Active Substance: INFLIXIMAB
     Dosage: 7 MILLIGRAM/KILOGRAM, QW
     Route: 065
     Dates: start: 20200407, end: 20230501
  124. INFLIXIMAB [Suspect]
     Active Substance: INFLIXIMAB
     Dosage: 199.82 MILLIGRAM/KILOGRAM
     Route: 065
  125. INFLIXIMAB [Suspect]
     Active Substance: INFLIXIMAB
     Dosage: UNK(MILLIGRAM/KILOGRAM)
     Route: 065
  126. INFLIXIMAB [Suspect]
     Active Substance: INFLIXIMAB
     Dosage: 7 MILLIGRAM/KILOGRAM
     Route: 065
     Dates: start: 20200407, end: 20230501
  127. INFLIXIMAB [Suspect]
     Active Substance: INFLIXIMAB
     Dosage: 7 MILLIGRAM/KILOGRAM
     Route: 065
  128. INFLIXIMAB [Suspect]
     Active Substance: INFLIXIMAB
     Dosage: 7 MILLIGRAM/KILOGRAM (199.82 MILLIGRAM/KILOGRAM)
     Route: 065
  129. INFLIXIMAB [Suspect]
     Active Substance: INFLIXIMAB
     Dosage: 7 MILLIGRAM/KILOGRAM
     Route: 065
  130. INFLIXIMAB [Suspect]
     Active Substance: INFLIXIMAB
     Dosage: 10 MG/KG (EVERY 8 WEEKS), CUMULATIVE DOSE 1119 MG/KG
     Route: 065
     Dates: start: 20200407, end: 20230501
  131. INFLIXIMAB [Suspect]
     Active Substance: INFLIXIMAB
     Dosage: 7 MILLIGRAM/KILOGRAM
     Route: 065
  132. INFLIXIMAB [Suspect]
     Active Substance: INFLIXIMAB
     Dosage: 7 MILLIGRAM/KILOGRAM
     Route: 065
  133. INFLIXIMAB [Suspect]
     Active Substance: INFLIXIMAB
     Dosage: 7 MILLIGRAM/KILOGRAM
     Route: 065
  134. INFLIXIMAB [Suspect]
     Active Substance: INFLIXIMAB
     Dosage: 7 MILLIGRAM/KILOGRAM
     Route: 065
  135. INFLIXIMAB [Suspect]
     Active Substance: INFLIXIMAB
     Dosage: 7 MILLIGRAM/KILOGRAM
     Route: 065
  136. INFLIXIMAB [Suspect]
     Active Substance: INFLIXIMAB
     Dosage: 7 MILLIGRAM/KILOGRAM
     Route: 065
  137. INFLIXIMAB [Suspect]
     Active Substance: INFLIXIMAB
     Dosage: 7 MILLIGRAM/KILOGRAM
     Route: 065
  138. INFLIXIMAB [Suspect]
     Active Substance: INFLIXIMAB
     Dosage: 7 MILLIGRAM/KILOGRAM
     Route: 065
  139. INFLIXIMAB [Suspect]
     Active Substance: INFLIXIMAB
     Dosage: 7 MILLIGRAM/KILOGRAM
     Route: 065
  140. INFLIXIMAB [Suspect]
     Active Substance: INFLIXIMAB
     Dosage: 7 MILLIGRAM/KILOGRAM
     Route: 065
  141. INFLIXIMAB [Suspect]
     Active Substance: INFLIXIMAB
     Dosage: 7 MILLIGRAM/KILOGRAM
     Route: 065
  142. INFLIXIMAB [Suspect]
     Active Substance: INFLIXIMAB
     Dosage: 7 MILLIGRAM/KILOGRAM
     Route: 065
  143. INFLIXIMAB [Suspect]
     Active Substance: INFLIXIMAB
     Dosage: 7 MILLIGRAM/KILOGRAM
     Route: 065
  144. INFLIXIMAB [Suspect]
     Active Substance: INFLIXIMAB
     Dosage: 7 MILLIGRAM/KILOGRAM
     Route: 065
  145. INFLIXIMAB [Suspect]
     Active Substance: INFLIXIMAB
     Dosage: 199.82 MILLIGRAM/KILOGRAM
     Route: 065
  146. INFLIXIMAB [Suspect]
     Active Substance: INFLIXIMAB
     Dosage: 199.82 MILLIGRAM/KILOGRAM
     Route: 065
  147. INFLIXIMAB [Suspect]
     Active Substance: INFLIXIMAB
     Dosage: 199.82 MILLIGRAM/KILOGRAM
     Route: 065
  148. INFLIXIMAB [Suspect]
     Active Substance: INFLIXIMAB
     Dosage: 199.82 MILLIGRAM/KILOGRAM
     Route: 065
  149. INFLIXIMAB [Suspect]
     Active Substance: INFLIXIMAB
     Dosage: 199.82 MILLIGRAM/KILOGRAM
     Route: 065
  150. INFLIXIMAB [Suspect]
     Active Substance: INFLIXIMAB
     Dosage: 199.82 MILLIGRAM/KILOGRAM
     Route: 065
  151. INFLIXIMAB [Suspect]
     Active Substance: INFLIXIMAB
     Dosage: 199.82 MILLIGRAM/KILOGRAM
     Route: 065
  152. INFLIXIMAB [Suspect]
     Active Substance: INFLIXIMAB
     Dosage: 199.82 MILLIGRAM/KILOGRAM
     Route: 065
  153. INFLIXIMAB [Suspect]
     Active Substance: INFLIXIMAB
     Dosage: 199.82 MILLIGRAM/KILOGRAM
     Route: 065
  154. INFLIXIMAB [Suspect]
     Active Substance: INFLIXIMAB
     Dosage: UNK(MILLIGRAM/KILOGRAM)
     Route: 065
  155. INFLIXIMAB [Suspect]
     Active Substance: INFLIXIMAB
     Dosage: UNK(MILLIGRAM/KILOGRAM)
     Route: 065
  156. INFLIXIMAB [Suspect]
     Active Substance: INFLIXIMAB
     Dosage: UNK(MILLIGRAM/KILOGRAM)
     Route: 065
  157. INFLIXIMAB [Suspect]
     Active Substance: INFLIXIMAB
     Dosage: UNK(MILLIGRAM/KILOGRAM)
     Route: 065
  158. INFLIXIMAB [Suspect]
     Active Substance: INFLIXIMAB
     Dosage: UNK(MILLIGRAM/KILOGRAM)
     Route: 065
  159. INFLIXIMAB [Suspect]
     Active Substance: INFLIXIMAB
     Dosage: UNK(MILLIGRAM/KILOGRAM)
     Route: 065
  160. INFLIXIMAB [Suspect]
     Active Substance: INFLIXIMAB
     Dosage: UNK(MILLIGRAM/KILOGRAM)
     Route: 065
  161. REMICADE [Suspect]
     Active Substance: INFLIXIMAB
     Indication: Colitis
     Dosage: UNK (INTRAVENOUS DRIP)
     Route: 042
  162. REMICADE [Suspect]
     Active Substance: INFLIXIMAB
     Dosage: 10 MILLIGRAM/KILOGRAM
     Route: 042
  163. REMICADE [Suspect]
     Active Substance: INFLIXIMAB
     Dosage: UNK (INTRAVENOUS DRIP)
     Route: 042
  164. REMICADE [Suspect]
     Active Substance: INFLIXIMAB
     Dosage: UNK (INTRAVENOUS DRIP)
     Route: 042
  165. REMICADE [Suspect]
     Active Substance: INFLIXIMAB
     Dosage: UNK (INTRAVENOUS DRIP)
     Route: 042
  166. REMICADE [Suspect]
     Active Substance: INFLIXIMAB
     Dosage: UNK (INTRAVENOUS DRIP)
     Route: 042
  167. REMICADE [Suspect]
     Active Substance: INFLIXIMAB
     Dosage: UNK (INTRAVENOUS DRIP)
     Route: 042
  168. REMICADE [Suspect]
     Active Substance: INFLIXIMAB
     Dosage: UNK (INTRAVENOUS DRIP)
     Route: 042
  169. REMICADE [Suspect]
     Active Substance: INFLIXIMAB
     Dosage: UNK (INTRAVENOUS DRIP)
     Route: 042
  170. REMICADE [Suspect]
     Active Substance: INFLIXIMAB
     Dosage: UNK (INTRAVENOUS DRIP)
     Route: 042
  171. REMICADE [Suspect]
     Active Substance: INFLIXIMAB
     Dosage: UNK (INTRAVENOUS DRIP)
     Route: 042
  172. REMICADE [Suspect]
     Active Substance: INFLIXIMAB
     Dosage: UNK (INTRAVENOUS DRIP)
     Route: 042
  173. REMICADE [Suspect]
     Active Substance: INFLIXIMAB
     Dosage: UNK (INTRAVENOUS DRIP)
     Route: 042
  174. REMICADE [Suspect]
     Active Substance: INFLIXIMAB
     Dosage: UNK (INTRAVENOUS DRIP)
     Route: 042
  175. REMICADE [Suspect]
     Active Substance: INFLIXIMAB
     Dosage: UNK (INTRAVENOUS DRIP)
     Route: 042
  176. REMICADE [Suspect]
     Active Substance: INFLIXIMAB
     Dosage: 10 MILLIGRAM/KILOGRAM, Q8WK
     Route: 042
  177. REMICADE [Suspect]
     Active Substance: INFLIXIMAB
     Dosage: UNK
     Route: 065
  178. REMICADE [Suspect]
     Active Substance: INFLIXIMAB
     Dosage: UNK
     Route: 065
  179. REMICADE [Suspect]
     Active Substance: INFLIXIMAB
     Dosage: UNK
     Route: 065
  180. REMICADE [Suspect]
     Active Substance: INFLIXIMAB
     Dosage: UNK
     Route: 065
  181. REMICADE [Suspect]
     Active Substance: INFLIXIMAB
     Dosage: UNK
     Route: 065
  182. REMICADE [Suspect]
     Active Substance: INFLIXIMAB
     Dosage: UNK
     Route: 065
  183. REMICADE [Suspect]
     Active Substance: INFLIXIMAB
     Dosage: UNK
     Route: 065
  184. REMICADE [Suspect]
     Active Substance: INFLIXIMAB
     Dosage: UNK
     Route: 065
  185. REMICADE [Suspect]
     Active Substance: INFLIXIMAB
     Dosage: UNK
     Route: 065
  186. REMICADE [Suspect]
     Active Substance: INFLIXIMAB
     Dosage: UNK
     Route: 065
  187. REMICADE [Suspect]
     Active Substance: INFLIXIMAB
     Dosage: UNK
     Route: 065
  188. REMICADE [Suspect]
     Active Substance: INFLIXIMAB
     Dosage: UNK
     Route: 065
  189. REMICADE [Suspect]
     Active Substance: INFLIXIMAB
     Dosage: UNK
     Route: 065
  190. REMICADE [Suspect]
     Active Substance: INFLIXIMAB
     Dosage: UNK
     Route: 065
  191. REMICADE [Suspect]
     Active Substance: INFLIXIMAB
     Dosage: UNK
     Route: 065
  192. REMICADE [Suspect]
     Active Substance: INFLIXIMAB
     Dosage: UNK
     Route: 065
  193. REMICADE [Suspect]
     Active Substance: INFLIXIMAB
     Dosage: UNK
     Route: 065
  194. REMICADE [Suspect]
     Active Substance: INFLIXIMAB
     Dosage: UNK
     Route: 065
  195. REMICADE [Suspect]
     Active Substance: INFLIXIMAB
     Dosage: UNK
     Route: 065
  196. REMICADE [Suspect]
     Active Substance: INFLIXIMAB
     Dosage: UNK (INTRAVENOUS DRIP)
     Route: 042
  197. REMICADE [Suspect]
     Active Substance: INFLIXIMAB
     Dosage: UNK (INTRAVENOUS DRIP)
     Route: 042
  198. REMICADE [Suspect]
     Active Substance: INFLIXIMAB
     Dosage: UNK (INTRAVENOUS DRIP)
     Route: 042
  199. REMICADE [Suspect]
     Active Substance: INFLIXIMAB
     Dosage: UNK (INTRAVENOUS DRIP)
     Route: 042
  200. REMICADE [Suspect]
     Active Substance: INFLIXIMAB
     Dosage: UNK (INTRAVENOUS DRIP)
     Route: 042
  201. REMICADE [Suspect]
     Active Substance: INFLIXIMAB
     Dosage: UNK (INTRAVENOUS DRIP)
     Route: 042
  202. REMICADE [Suspect]
     Active Substance: INFLIXIMAB
     Dosage: UNK (INTRAVENOUS DRIP)
     Route: 042
  203. REMICADE [Suspect]
     Active Substance: INFLIXIMAB
     Dosage: UNK (INTRAVENOUS DRIP)
     Route: 042
  204. REMICADE [Suspect]
     Active Substance: INFLIXIMAB
     Dosage: UNK (INTRAVENOUS DRIP)
     Route: 042
  205. REMICADE [Suspect]
     Active Substance: INFLIXIMAB
     Dosage: UNK (INTRAVENOUS DRIP)
     Route: 042
  206. REMICADE [Suspect]
     Active Substance: INFLIXIMAB
     Dosage: UNK (INTRAVENOUS DRIP)
     Route: 042
  207. REMICADE [Suspect]
     Active Substance: INFLIXIMAB
     Dosage: UNK (INTRAVENOUS DRIP)
     Route: 042
  208. REMICADE [Suspect]
     Active Substance: INFLIXIMAB
     Dosage: UNK (INTRAVENOUS DRIP)
     Route: 042
  209. REMICADE [Suspect]
     Active Substance: INFLIXIMAB
     Dosage: UNK (INTRAVENOUS DRIP)
     Route: 042
  210. REMICADE [Suspect]
     Active Substance: INFLIXIMAB
     Dosage: UNK (INTRAVENOUS DRIP)
     Route: 042
  211. METHOTREXATE [Concomitant]
     Active Substance: METHOTREXATE
     Indication: Colitis
     Dosage: UNK
     Route: 065

REACTIONS (6)
  - Arthritis bacterial [Recovering/Resolving]
  - Streptococcal sepsis [Recovering/Resolving]
  - Sepsis [Recovering/Resolving]
  - Streptococcal infection [Recovering/Resolving]
  - Overdose [Unknown]
  - Product use in unapproved indication [Unknown]

NARRATIVE: CASE EVENT DATE: 20230501
